FAERS Safety Report 14248046 (Version 2)
Quarter: 2017Q4

REPORT INFORMATION
  Report Type: Spontaneous
  Country: GB (occurrence: GB)
  Receive Date: 20171204
  Receipt Date: 20171206
  Transmission Date: 20180321
  Serious: Yes (Other)
  Sender: FDA-Public Use
  Company Number: GB-009507513-1711GBR011630

PATIENT
  Age: 23 Year
  Sex: Female
  Weight: 55 kg

DRUGS (1)
  1. MOMETASONE FUROATE. [Suspect]
     Active Substance: MOMETASONE FUROATE
     Indication: PRODUCT USED FOR UNKNOWN INDICATION
     Dosage: UNK

REACTIONS (1)
  - Blister [Recovered/Resolved]

NARRATIVE: CASE EVENT DATE: 20171109
